FAERS Safety Report 8095898-2 (Version None)
Quarter: 2012Q1

REPORT INFORMATION
  Report Type: 
  Country: None (occurrence: None)
  Receive Date: 20120129
  Receipt Date: 20111223
  Transmission Date: 20120608
  Serious: No
  Sender: FDA-Public Use
  Company Number: US-ABBOTT-11P-163-0886625-00

PATIENT
  Age: 35 Year
  Sex: Female

DRUGS (6)
  1. HUMIRA [Suspect]
     Indication: CROHN'S DISEASE
     Dates: start: 20111111
  2. CANASA [Concomitant]
     Indication: PRODUCT USED FOR UNKNOWN INDICATION
  3. LIALDA [Concomitant]
     Indication: CROHN'S DISEASE
     Dosage: AT BEDTIME, ^I THINK IT'S 1.2 GM EACH^
  4. COUMADIN [Concomitant]
     Indication: PRODUCT USED FOR UNKNOWN INDICATION
  5. ANUSOL [Concomitant]
     Indication: HAEMORRHOIDS
  6. COUMADIN [Concomitant]
     Dosage: WEEKLY

REACTIONS (2)
  - ENDODONTIC PROCEDURE [None]
  - FATIGUE [None]
